FAERS Safety Report 13642169 (Version 2)
Quarter: 2018Q1

REPORT INFORMATION
  Report Type: Spontaneous
  Country: US (occurrence: US)
  Receive Date: 20170612
  Receipt Date: 20180208
  Transmission Date: 20180508
  Serious: Yes (Death)
  Sender: FDA-Public Use
  Company Number: US-LEXICON PHARMACEUTICALS, INC-17-1606-00361

PATIENT
  Age: 63 Year
  Sex: Male

DRUGS (6)
  1. AFINITOR [Concomitant]
     Active Substance: EVEROLIMUS
  2. SUTENT [Concomitant]
     Active Substance: SUNITINIB MALATE
  3. XELODA [Concomitant]
     Active Substance: CAPECITABINE
  4. TELOTRISTAT ETHYL [Suspect]
     Active Substance: TELOTRISTAT ETHYL
     Indication: CARCINOID SYNDROME
     Route: 048
     Dates: start: 20170510, end: 201705
  5. TEMODAR [Concomitant]
     Active Substance: TEMOZOLOMIDE
  6. HIGH DOSE SANDOSTATIN [Concomitant]

REACTIONS (1)
  - Haemorrhagic stroke [Fatal]

NARRATIVE: CASE EVENT DATE: 20170528
